FAERS Safety Report 19151959 (Version 1)
Quarter: 2021Q2

REPORT INFORMATION
  Report Type: Spontaneous
  Country: US (occurrence: US)
  Receive Date: 20210419
  Receipt Date: 20210419
  Transmission Date: 20210717
  Serious: Yes (Other)
  Sender: FDA-Public Use
  Company Number: US-SA-2021SA117472

PATIENT
  Age: 65 Year
  Sex: Female

DRUGS (1)
  1. LANTUS SOLOSTAR [Suspect]
     Active Substance: INSULIN GLARGINE
     Indication: TYPE 2 DIABETES MELLITUS
     Dosage: 40 AM 45 PM , TWICE DAILY
     Route: 065

REACTIONS (4)
  - Leg amputation [Unknown]
  - Inappropriate schedule of product administration [Unknown]
  - Monoplegia [Unknown]
  - Surgery [Unknown]
